FAERS Safety Report 4550277-7 (Version None)
Quarter: 2005Q1

REPORT INFORMATION
  Report Type: 
  Country: None (occurrence: None)
  Receive Date: 20050107
  Receipt Date: 20031223
  Transmission Date: 20050727
  Serious: Yes (Death)
  Sender: FDA-Public Use
  Company Number: 2003IM000556

PATIENT
  Age: 63 Year
  Sex: Female

DRUGS (1)
  1. ACTIMMUNE [Suspect]
     Indication: INTERSTITIAL LUNG DISEASE
     Dosage: 200 MCG; TIW; SUBCUTANEOUS
     Route: 058
     Dates: start: 20021010, end: 20030418

REACTIONS (1)
  - DEATH [None]
